FAERS Safety Report 8935305 (Version 1)
Quarter: 2012Q4

REPORT INFORMATION
  Report Type: 
  Country: FR (occurrence: FR)
  Receive Date: 20121129
  Receipt Date: 20121129
  Transmission Date: 20130627
  Serious: Yes (Death, Life-Threatening, Hospitalization)
  Sender: FDA-Public Use
  Company Number: FR-GLAXOSMITHKLINE-B0845841A

PATIENT
  Sex: Male

DRUGS (10)
  1. CLAVENTIN [Suspect]
     Indication: LUNG INFECTION
     Dosage: 5G Three times per day
     Route: 042
     Dates: start: 20120915, end: 20120917
  2. VFEND [Suspect]
     Indication: BRONCHOPULMONARY ASPERGILLOSIS
     Dosage: 200MG Twice per day
     Route: 042
     Dates: start: 20120906, end: 20120921
  3. INEXIUM [Suspect]
     Indication: PRODUCT USED FOR UNKNOWN INDICATION
     Dosage: 40MG Per day
     Route: 042
  4. COOLMETEC [Concomitant]
  5. IXPRIM [Concomitant]
  6. VITAMIN K1 [Concomitant]
  7. NEURONTIN [Concomitant]
  8. FUNGIZONE [Concomitant]
  9. CLAFORAN [Concomitant]
     Indication: SEPSIS
     Dates: start: 201208, end: 201209
  10. CANCIDAS [Concomitant]
     Indication: SEPSIS
     Dates: start: 201208, end: 201209

REACTIONS (14)
  - Drug-induced liver injury [Fatal]
  - Jaundice cholestatic [Fatal]
  - Hepatocellular injury [Fatal]
  - Chromaturia [Fatal]
  - Prothrombin time ratio decreased [Fatal]
  - Hepatic encephalopathy [Fatal]
  - Blood alkaline phosphatase increased [Fatal]
  - Gamma-glutamyltransferase increased [Fatal]
  - Blood albumin decreased [Fatal]
  - Blood bilirubin increased [Fatal]
  - Abdominal pain upper [Unknown]
  - Hepatic failure [None]
  - Overdose [None]
  - Drug interaction [None]
